FAERS Safety Report 24234082 (Version 1)
Quarter: 2024Q3

REPORT INFORMATION
  Report Type: Spontaneous
  Country: FR (occurrence: FR)
  Receive Date: 20240821
  Receipt Date: 20240821
  Transmission Date: 20241016
  Serious: Yes (Death, Congenital Anomaly)
  Sender: TEVA
  Company Number: None

PATIENT

DRUGS (2)
  1. METHOTREXATE [Suspect]
     Active Substance: METHOTREXATE
     Indication: Rhupus syndrome
     Dosage: UP TO 4 WEEKS
     Route: 065
  2. PLAQUENIL [Suspect]
     Active Substance: HYDROXYCHLOROQUINE SULFATE
     Indication: Rhupus syndrome
     Route: 065

REACTIONS (4)
  - Talipes [Fatal]
  - Abortion induced [Fatal]
  - Maternal exposure during pregnancy [Fatal]
  - Hemivertebra [Fatal]

NARRATIVE: CASE EVENT DATE: 20240627
